FAERS Safety Report 16302526 (Version 2)
Quarter: 2019Q3

REPORT INFORMATION
  Report Type: Spontaneous
  Country: US (occurrence: US)
  Receive Date: 20190513
  Receipt Date: 20190822
  Transmission Date: 20191004
  Serious: Yes (Other)
  Sender: FDA-Public Use
  Company Number: US-SA-2019SA123888

PATIENT
  Age: 56 Year
  Sex: Female
  Weight: 54.42 kg

DRUGS (15)
  1. PARAPLATIN [Concomitant]
     Active Substance: CARBOPLATIN
     Indication: BREAST CANCER FEMALE
     Dosage: 498 MG, QCY
     Route: 042
     Dates: start: 20160603, end: 20160603
  2. DECADRON [Concomitant]
     Active Substance: DEXAMETHASONE
     Indication: PREMEDICATION
     Dosage: 12 MG
     Route: 042
     Dates: start: 20160603, end: 20160916
  3. PARAPLATIN [Concomitant]
     Active Substance: CARBOPLATIN
     Dosage: 588 MG, QCY
     Route: 042
     Dates: start: 20160715, end: 20160715
  4. PARAPLATIN [Concomitant]
     Active Substance: CARBOPLATIN
     Dosage: 522 MG, QCY
     Route: 042
     Dates: start: 20160805, end: 20160805
  5. DURESTOP [Concomitant]
  6. PARAPLATIN [Concomitant]
     Active Substance: CARBOPLATIN
     Dosage: 570 MG, QCY
     Route: 042
     Dates: start: 20160826, end: 20160826
  7. CARVEDILOL. [Concomitant]
     Active Substance: CARVEDILOL
  8. TAXOTERE [Suspect]
     Active Substance: DOCETAXEL
     Indication: BREAST CANCER FEMALE
     Dosage: 125 MG, Q3W
     Route: 042
     Dates: start: 20160603, end: 20160603
  9. TAXOTERE [Suspect]
     Active Substance: DOCETAXEL
     Dosage: 125 MG, Q3W
     Route: 042
     Dates: start: 20160916, end: 20160916
  10. PARAPLATIN [Concomitant]
     Active Substance: CARBOPLATIN
     Dosage: 468 MG, QCY
     Route: 042
     Dates: start: 20160624, end: 20160624
  11. WARFARIN [Concomitant]
     Active Substance: WARFARIN
  12. PARAPLATIN [Concomitant]
     Active Substance: CARBOPLATIN
     Dosage: 576 MG, QCY
     Route: 042
     Dates: start: 20160916, end: 20160916
  13. NEULASTA [Concomitant]
     Active Substance: PEGFILGRASTIM
     Dosage: 6 MG
     Route: 058
     Dates: start: 20160603, end: 20160916
  14. ALOXI [Concomitant]
     Active Substance: PALONOSETRON HYDROCHLORIDE
     Indication: PREMEDICATION
     Dosage: 0.25 MG
     Route: 042
     Dates: start: 20160603, end: 20160916
  15. EMEND [Concomitant]
     Active Substance: APREPITANT
     Indication: PREMEDICATION
     Dosage: 150 MG
     Route: 048
     Dates: start: 20160603, end: 20160916

REACTIONS (2)
  - Alopecia [Recovering/Resolving]
  - Psychological trauma [Unknown]

NARRATIVE: CASE EVENT DATE: 20170317
